FAERS Safety Report 5375711-4 (Version None)
Quarter: 2007Q2

REPORT INFORMATION
  Report Type: 
  Country: None (occurrence: None)
  Receive Date: 20070628
  Receipt Date: 20070619
  Transmission Date: 20071010
  Serious: Yes (Death, Hospitalization)
  Sender: FDA-Public Use
  Company Number: 2007-02937

PATIENT
  Age: 39 Year
  Sex: Male

DRUGS (4)
  1. CHLORDIAZEPOXIDE AND AMITRIPTYLINE [Suspect]
     Indication: BIPOLAR DISORDER
     Dosage: 200 MG, DAILY, UNK
     Dates: end: 20060101
  2. HALOPERIDOL [Suspect]
     Indication: BIPOLAR DISORDER
     Dosage: 10 MG, TID, UNK
     Dates: end: 20060101
  3. LITHIUM CARBONATE [Suspect]
     Indication: BIPOLAR DISORDER
     Dosage: 200 MG, BID, UNK
     Dates: end: 20060101
  4. VALPROATE SODIUM [Suspect]
     Indication: BIPOLAR DISORDER
     Dosage: 500 MG, BID, UNK
     Dates: end: 20060101

REACTIONS (4)
  - BRUGADA SYNDROME [None]
  - ELECTROCARDIOGRAM QT PROLONGED [None]
  - ELECTROCARDIOGRAM ST-T CHANGE [None]
  - SUDDEN DEATH [None]
